FAERS Safety Report 7450365-1 (Version None)
Quarter: 2011Q2

REPORT INFORMATION
  Report Type: 
  Country: None (occurrence: None)
  Receive Date: 20110429
  Receipt Date: 20110429
  Transmission Date: 20111010
  Serious: Yes (Life-Threatening, Other)
  Sender: FDA-Public Use
  Company Number: None

PATIENT
  Age: 67 Year
  Sex: Male
  Weight: 72.5755 kg

DRUGS (1)
  1. MIRTAZAPINE [Suspect]
     Indication: DEPRESSION
     Dosage: 45 MGM DAILY PO
     Route: 048
     Dates: start: 20000605, end: 20110403

REACTIONS (3)
  - VISUAL IMPAIRMENT [None]
  - DRY SKIN [None]
  - OEDEMA PERIPHERAL [None]
